FAERS Safety Report 8920497 (Version 3)
Quarter: 2013Q1

REPORT INFORMATION
  Report Type: Report from Study
  Country: BR (occurrence: BR)
  Receive Date: 20121122
  Receipt Date: 20130309
  Transmission Date: 20140127
  Serious: Yes (Other)
  Sender: FDA-Public Use
  Company Number: BR-US-EMD SERONO, INC.-7176914

PATIENT
  Sex: Female

DRUGS (9)
  1. REBIF [Suspect]
     Indication: RELAPSING-REMITTING MULTIPLE SCLEROSIS
     Dates: start: 20120401
  2. IBUPROFEN [Concomitant]
     Indication: PRODUCT USED FOR UNKNOWN INDICATION
  3. LISADOR [Concomitant]
     Indication: PREMEDICATION
  4. RIVOTRIL [Concomitant]
     Indication: PRODUCT USED FOR UNKNOWN INDICATION
  5. DEPURA [Concomitant]
     Indication: PRODUCT USED FOR UNKNOWN INDICATION
  6. PLAQUINOL [Concomitant]
     Indication: PRODUCT USED FOR UNKNOWN INDICATION
  7. CYCLOBENZAPRINE HYDROCHLORIDE [Concomitant]
     Indication: PRODUCT USED FOR UNKNOWN INDICATION
  8. DEFLANIL (DEFLAZACORT) [Concomitant]
     Indication: PRODUCT USED FOR UNKNOWN INDICATION
  9. REQUINOL (HYDROXYCHLOROQUIN) [Concomitant]
     Indication: PRODUCT USED FOR UNKNOWN INDICATION

REACTIONS (10)
  - Systemic lupus erythematosus [Not Recovered/Not Resolved]
  - Pancreatitis chronic [Unknown]
  - Mitral valve prolapse [Unknown]
  - Pancreatic cyst [Unknown]
  - Liver disorder [Unknown]
  - Functional gastrointestinal disorder [Unknown]
  - Flatulence [Unknown]
  - Pyrexia [Unknown]
  - Pain [Unknown]
  - Drug dose omission [Unknown]
